FAERS Safety Report 22635511 (Version 1)
Quarter: 2023Q2

REPORT INFORMATION
  Report Type: Spontaneous
  Country: CN (occurrence: CN)
  Receive Date: 20230623
  Receipt Date: 20230623
  Transmission Date: 20230722
  Serious: Yes (Hospitalization, Other)
  Sender: FDA-Public Use
  Company Number: CN-009507513-2306CHN009804

PATIENT
  Age: 72 Year
  Sex: Male
  Weight: 60.7 kg

DRUGS (7)
  1. KEYTRUDA [Suspect]
     Active Substance: PEMBROLIZUMAB
     Indication: Lung neoplasm malignant
     Dosage: 200MG, ONCE
     Route: 041
     Dates: start: 20230430, end: 20230430
  2. CARBOPLATIN [Suspect]
     Active Substance: CARBOPLATIN
     Indication: Chemotherapy
     Dosage: 500MG, ONCE
     Route: 041
     Dates: start: 20230501, end: 20230501
  3. PEMETREXED DISODIUM [Suspect]
     Active Substance: PEMETREXED DISODIUM
     Indication: Chemotherapy
     Dosage: 600MG, ONCE
     Route: 041
     Dates: start: 20230501, end: 20230501
  4. BEVACIZUMAB [Suspect]
     Active Substance: BEVACIZUMAB
     Indication: Chemotherapy
     Dosage: 400 MG, ONCE
     Route: 041
     Dates: start: 20230501, end: 20230501
  5. SODIUM CHLORIDE [Concomitant]
     Active Substance: SODIUM CHLORIDE
     Indication: Medication dilution
     Dosage: 100ML, ONCE
     Route: 041
     Dates: start: 20230430, end: 20230430
  6. SODIUM CHLORIDE [Concomitant]
     Active Substance: SODIUM CHLORIDE
     Dosage: 100ML, ONCE
     Route: 041
     Dates: start: 20230501, end: 20230501
  7. DEXTROSE [Concomitant]
     Active Substance: DEXTROSE\DEXTROSE MONOHYDRATE
     Indication: Medication dilution
     Dosage: 500ML, ONCE
     Route: 041
     Dates: start: 20230501, end: 20230501

REACTIONS (3)
  - Neutrophil count decreased [Recovering/Resolving]
  - Hospitalisation [Unknown]
  - Product use issue [Unknown]

NARRATIVE: CASE EVENT DATE: 20230519
